FAERS Safety Report 14189439 (Version 1)
Quarter: 2017Q4

REPORT INFORMATION
  Report Type: Report from Study
  Country: US (occurrence: US)
  Receive Date: 20171115
  Receipt Date: 20171115
  Transmission Date: 20180321
  Serious: Yes (Other)
  Sender: FDA-Public Use
  Company Number: US-ROCHE-2020555

PATIENT

DRUGS (2)
  1. OBINUTUZUMAB. [Suspect]
     Active Substance: OBINUTUZUMAB
     Indication: CHRONIC LYMPHOCYTIC LEUKAEMIA
     Dosage: D1, D8, D15 FOR CYCLE 1 AND D1 FOR CYCLES 2 TO 6
     Route: 065
  2. IBRUTINIB [Suspect]
     Active Substance: IBRUTINIB
     Indication: CHRONIC LYMPHOCYTIC LEUKAEMIA
     Route: 065

REACTIONS (17)
  - Renal cyst haemorrhage [Unknown]
  - Atrial flutter [Unknown]
  - Vomiting [Unknown]
  - Thrombocytopenia [Unknown]
  - Hepatocellular injury [Unknown]
  - Haemoptysis [Unknown]
  - Pain [Unknown]
  - Diarrhoea [Unknown]
  - Hypertension [Unknown]
  - Diabetes mellitus [Unknown]
  - Disseminated intravascular coagulation [Unknown]
  - Pneumonia [Unknown]
  - Febrile neutropenia [Unknown]
  - Neutropenia [Unknown]
  - Tumour lysis syndrome [Unknown]
  - Atrial fibrillation [Unknown]
  - Listeriosis [Unknown]
